FAERS Safety Report 9672202 (Version 1)
Quarter: 2013Q4

REPORT INFORMATION
  Report Type: Spontaneous
  Country: JP (occurrence: None)
  Receive Date: 20131105
  Receipt Date: 20131105
  Transmission Date: 20140711
  Serious: Yes (Other)
  Sender: FDA-Public Use
  Company Number: COR_00024_2013

PATIENT
  Age: 58 Year
  Sex: Female

DRUGS (2)
  1. CARBOPLATIN (CARBOPLATIN) [Suspect]
     Indication: ENDOMETRIAL CANCER
     Dosage: (AUC=5 ONCE)
  2. DOCETAXEL (DOCETAXEL) [Suspect]
     Indication: ENDOMETRIAL CANCER
     Dosage: (70 MG/M2 1X)

REACTIONS (14)
  - Fatigue [None]
  - Decreased appetite [None]
  - Restlessness [None]
  - Muscular weakness [None]
  - Myalgia [None]
  - White blood cell count decreased [None]
  - Platelet count decreased [None]
  - C-reactive protein increased [None]
  - Blood lactate dehydrogenase increased [None]
  - Blood creatinine increased [None]
  - Blood urea increased [None]
  - Streptococcal bacteraemia [None]
  - Muscle abscess [None]
  - Pyomyositis [None]
